FAERS Safety Report 8044644-7 (Version None)
Quarter: 2012Q1

REPORT INFORMATION
  Report Type: 
  Country: None (occurrence: None)
  Receive Date: 20120113
  Receipt Date: 20120111
  Transmission Date: 20120608
  Serious: Yes (Other)
  Sender: FDA-Public Use
  Company Number: US-BAYER-2012-003627

PATIENT
  Age: 45 Year
  Sex: Female

DRUGS (1)
  1. BETASERON [Suspect]
     Indication: MULTIPLE SCLEROSIS
     Dosage: 8 MIU, UNK
     Route: 058
     Dates: start: 20090210

REACTIONS (12)
  - OVARIAN CYST [None]
  - MENOPAUSE [None]
  - UTERINE POLYP [None]
  - NASAL CONGESTION [None]
  - UTERINE NEOPLASM [None]
  - UTERINE CYST [None]
  - HEADACHE [None]
  - MALAISE [None]
  - SINUSITIS [None]
  - VERTIGO [None]
  - MENSTRUATION DELAYED [None]
  - DIPLOPIA [None]
